FAERS Safety Report 14880915 (Version 5)
Quarter: 2018Q2

REPORT INFORMATION
  Report Type: Report from Study
  Country: DE (occurrence: DE)
  Receive Date: 20180511
  Receipt Date: 20180621
  Transmission Date: 20180711
  Serious: Yes (Hospitalization)
  Sender: FDA-Public Use
  Company Number: DE-TEVA-2018-DE-891863

PATIENT
  Age: 58 Year
  Sex: Female
  Weight: 41 kg

DRUGS (10)
  1. ERBITUX [Suspect]
     Active Substance: CETUXIMAB
     Route: 042
     Dates: start: 20170621, end: 20170621
  2. PARACETAMOL [Concomitant]
     Active Substance: ACETAMINOPHEN
     Indication: PREMEDICATION
     Route: 065
  3. PLIAZON [Concomitant]
     Indication: PROPHYLAXIS
     Route: 065
  4. CARBOPLATIN. [Suspect]
     Active Substance: CARBOPLATIN
     Dosage: 5 AUC
     Route: 065
     Dates: start: 20170621, end: 20170720
  5. FLUOROURACIL. [Suspect]
     Active Substance: FLUOROURACIL
     Route: 065
     Dates: start: 20170720
  6. CARBOPLATIN. [Suspect]
     Active Substance: CARBOPLATIN
     Indication: HEAD AND NECK CANCER
     Dosage: 5 AUC
     Route: 065
     Dates: start: 20170621, end: 20170621
  7. FLUOROURACIL. [Suspect]
     Active Substance: FLUOROURACIL
     Dosage: DAILY DOSE: 600 MG/M2 MILLIGRAM(S)/SQ. METER EVERY WEEKS
     Route: 065
     Dates: start: 20170720
  8. FLUOROURACIL. [Suspect]
     Active Substance: FLUOROURACIL
     Indication: HEAD AND NECK CANCER
     Dosage: DAILY DOSE: 9000 MG/M2 MILLIGRAM(S)/SQ. METER EVERY WEEKS
     Route: 065
     Dates: start: 20170621, end: 20170626
  9. ERBITUX [Suspect]
     Active Substance: CETUXIMAB
     Dosage: DAILY DOSE: 250 MG/M2 MILLIGRAM(S)/SQ. METER EVERY WEEKS
     Route: 042
     Dates: start: 20170705
  10. ERBITUX [Suspect]
     Active Substance: CETUXIMAB
     Indication: HEAD AND NECK CANCER
     Dosage: DAILY DOSE: 250 MG/M2 MILLIGRAM(S)/SQ. METER EVERY WEEKS
     Route: 042
     Dates: start: 20170704

REACTIONS (5)
  - Platelet count decreased [Not Recovered/Not Resolved]
  - Enterocolitis infectious [Recovered/Resolved]
  - Mucosal inflammation [Unknown]
  - Neutrophil count decreased [Unknown]
  - Anaemia [Recovered/Resolved]

NARRATIVE: CASE EVENT DATE: 201706
